FAERS Safety Report 17336786 (Version 7)
Quarter: 2020Q4

REPORT INFORMATION
  Report Type: Spontaneous
  Country: JP (occurrence: JP)
  Receive Date: 20200129
  Receipt Date: 20201022
  Transmission Date: 20210113
  Serious: Yes (Hospitalization)
  Sender: FDA-Public Use
  Company Number: NVSJ2020JP000994

PATIENT
  Age: 15 Year
  Sex: Female

DRUGS (1)
  1. KYMRIAH [Suspect]
     Active Substance: TISAGENLECLEUCEL
     Indication: ACUTE LYMPHOCYTIC LEUKAEMIA RECURRENT
     Dosage: UNK
     Route: 041
     Dates: start: 20191209, end: 20191209

REACTIONS (10)
  - Thrombocytopenia [Recovering/Resolving]
  - Erythropenia [Recovering/Resolving]
  - Mobility decreased [Recovering/Resolving]
  - Neurological symptom [Unknown]
  - Concomitant disease aggravated [Recovering/Resolving]
  - Tremor [Recovering/Resolving]
  - Leukoencephalopathy [Recovering/Resolving]
  - Leukopenia [Recovering/Resolving]
  - Cytokine release syndrome [Recovered/Resolved]
  - Pyrexia [Recovered/Resolved]

NARRATIVE: CASE EVENT DATE: 20191211
